FAERS Safety Report 5256518-5 (Version None)
Quarter: 2007Q1

REPORT INFORMATION
  Report Type: 
  Country: None (occurrence: None)
  Receive Date: 20061220
  Receipt Date: 20061027
  Transmission Date: 20070707
  Serious: No
  Sender: FDA-Public Use
  Company Number: 2006RL000389

PATIENT

DRUGS (2)
  1. OMACOR [Suspect]
     Indication: DRUG USE FOR UNKNOWN INDICATION
     Dosage: 4 GM; QD; PO
     Route: 048
     Dates: end: 20060101
  2. OMACOR [Suspect]
     Indication: DRUG USE FOR UNKNOWN INDICATION
     Dosage: 4 GM; QD; PO
     Route: 048
     Dates: start: 20060101

REACTIONS (2)
  - ABDOMINAL DISTENSION [None]
  - CHEST PAIN [None]
